FAERS Safety Report 25712350 (Version 2)
Quarter: 2025Q3

REPORT INFORMATION
  Report Type: Spontaneous
  Country: EU (occurrence: EU)
  Receive Date: 20250821
  Receipt Date: 20250912
  Transmission Date: 20251020
  Serious: Yes (Hospitalization, Other)
  Sender: MYLAN
  Company Number: None

PATIENT
  Age: 24 Year
  Sex: Female
  Weight: 76 kg

DRUGS (28)
  1. VENLAFAXINE HCL [Suspect]
     Active Substance: VENLAFAXINE HYDROCHLORIDE
     Indication: Depressed mood
     Dosage: 150 MILLIGRAM, QD
     Route: 065
     Dates: start: 2009, end: 2014
  2. VENLAFAXINE HCL [Suspect]
     Active Substance: VENLAFAXINE HYDROCHLORIDE
     Indication: Depression
     Dosage: 150 MILLIGRAM, QD
     Dates: start: 2009, end: 2014
  3. VENLAFAXINE HCL [Suspect]
     Active Substance: VENLAFAXINE HYDROCHLORIDE
     Dosage: 150 MILLIGRAM, QD
     Route: 065
     Dates: start: 2009, end: 2014
  4. VENLAFAXINE HCL [Suspect]
     Active Substance: VENLAFAXINE HYDROCHLORIDE
     Dosage: 150 MILLIGRAM, QD
     Dates: start: 2009, end: 2014
  5. VENLAFAXINE HCL [Suspect]
     Active Substance: VENLAFAXINE HYDROCHLORIDE
     Dosage: 75 MILLIGRAM, QD
     Dates: start: 2009
  6. VENLAFAXINE HCL [Suspect]
     Active Substance: VENLAFAXINE HYDROCHLORIDE
     Dosage: 75 MILLIGRAM, QD
     Dates: start: 2009
  7. VENLAFAXINE HCL [Suspect]
     Active Substance: VENLAFAXINE HYDROCHLORIDE
     Dosage: 75 MILLIGRAM, QD
     Route: 065
     Dates: start: 2009
  8. VENLAFAXINE HCL [Suspect]
     Active Substance: VENLAFAXINE HYDROCHLORIDE
     Dosage: 75 MILLIGRAM, QD
     Route: 065
     Dates: start: 2009
  9. VENLAFAXINE HCL [Suspect]
     Active Substance: VENLAFAXINE HYDROCHLORIDE
     Dosage: 37.5 MG, DAILY
     Dates: start: 201301, end: 201502
  10. VENLAFAXINE HCL [Suspect]
     Active Substance: VENLAFAXINE HYDROCHLORIDE
     Dosage: 37.5 MG, DAILY
     Route: 065
     Dates: start: 201301, end: 201502
  11. VENLAFAXINE HCL [Suspect]
     Active Substance: VENLAFAXINE HYDROCHLORIDE
     Dosage: 37.5 MG, DAILY
     Route: 065
     Dates: start: 201301, end: 201502
  12. VENLAFAXINE HCL [Suspect]
     Active Substance: VENLAFAXINE HYDROCHLORIDE
     Dosage: 37.5 MG, DAILY
     Dates: start: 201301, end: 201502
  13. VENLAFAXINE HCL [Suspect]
     Active Substance: VENLAFAXINE HYDROCHLORIDE
     Dosage: 150 MILLIGRAM, QD
     Route: 065
     Dates: start: 2010
  14. VENLAFAXINE HCL [Suspect]
     Active Substance: VENLAFAXINE HYDROCHLORIDE
     Dosage: 150 MILLIGRAM, QD
     Route: 065
     Dates: start: 2010
  15. VENLAFAXINE HCL [Suspect]
     Active Substance: VENLAFAXINE HYDROCHLORIDE
     Dosage: 150 MILLIGRAM, QD
     Dates: start: 2010
  16. VENLAFAXINE HCL [Suspect]
     Active Substance: VENLAFAXINE HYDROCHLORIDE
     Dosage: 150 MILLIGRAM, QD
     Dates: start: 2010
  17. VENLAFAXINE HCL [Suspect]
     Active Substance: VENLAFAXINE HYDROCHLORIDE
     Dosage: 225 MILLIGRAM, QD
     Route: 065
     Dates: start: 201102, end: 201105
  18. VENLAFAXINE HCL [Suspect]
     Active Substance: VENLAFAXINE HYDROCHLORIDE
     Dosage: 225 MILLIGRAM, QD
     Route: 065
     Dates: start: 201102, end: 201105
  19. VENLAFAXINE HCL [Suspect]
     Active Substance: VENLAFAXINE HYDROCHLORIDE
     Dosage: 225 MILLIGRAM, QD
     Dates: start: 201102, end: 201105
  20. VENLAFAXINE HCL [Suspect]
     Active Substance: VENLAFAXINE HYDROCHLORIDE
     Dosage: 225 MILLIGRAM, QD
     Dates: start: 201102, end: 201105
  21. VENLAFAXINE HCL [Suspect]
     Active Substance: VENLAFAXINE HYDROCHLORIDE
     Dosage: 75 MG, QD (SLOWLY REDUCED FROM 225 MG TO 75 MG AFTER HOSPITAL STAY AND DISCONTINUED IN SUMMER 2012)
     Route: 065
     Dates: start: 201105, end: 2012
  22. VENLAFAXINE HCL [Suspect]
     Active Substance: VENLAFAXINE HYDROCHLORIDE
     Dosage: 75 MG, QD (SLOWLY REDUCED FROM 225 MG TO 75 MG AFTER HOSPITAL STAY AND DISCONTINUED IN SUMMER 2012)
     Dates: start: 201105, end: 2012
  23. VENLAFAXINE HCL [Suspect]
     Active Substance: VENLAFAXINE HYDROCHLORIDE
     Dosage: 75 MG, QD (SLOWLY REDUCED FROM 225 MG TO 75 MG AFTER HOSPITAL STAY AND DISCONTINUED IN SUMMER 2012)
     Dates: start: 201105, end: 2012
  24. VENLAFAXINE HCL [Suspect]
     Active Substance: VENLAFAXINE HYDROCHLORIDE
     Dosage: 75 MG, QD (SLOWLY REDUCED FROM 225 MG TO 75 MG AFTER HOSPITAL STAY AND DISCONTINUED IN SUMMER 2012)
     Route: 065
     Dates: start: 201105, end: 2012
  25. Atosil [Concomitant]
     Indication: Restlessness
  26. Atosil [Concomitant]
     Indication: Tension
     Route: 065
  27. Atosil [Concomitant]
     Route: 065
  28. Atosil [Concomitant]

REACTIONS (41)
  - Bradycardia [Unknown]
  - General physical condition abnormal [Recovered/Resolved]
  - Restlessness [Recovered/Resolved]
  - Tension [Recovered/Resolved]
  - Vision blurred [Recovered/Resolved]
  - Urinary incontinence [Recovered/Resolved]
  - Derealisation [Recovered/Resolved]
  - Depressed mood [Recovered/Resolved]
  - Loss of personal independence in daily activities [Recovered/Resolved]
  - Hypoaesthesia [Recovered/Resolved]
  - Brain fog [Recovered/Resolved]
  - Emotional poverty [Recovered/Resolved]
  - Eczema [Unknown]
  - Hypotonia [Unknown]
  - Sick leave [Recovered/Resolved]
  - Dysuria [Unknown]
  - Sinus arrhythmia [Unknown]
  - Aggression [Unknown]
  - Irritability [Unknown]
  - Thinking abnormal [Unknown]
  - Mood swings [Unknown]
  - Anxiety [Unknown]
  - Paraesthesia [Recovered/Resolved]
  - Fatigue [Recovered/Resolved]
  - Somnolence [Recovered/Resolved]
  - Product communication issue [Unknown]
  - Inappropriate schedule of product discontinuation [Unknown]
  - Impulsive behaviour [Recovered/Resolved]
  - Depersonalisation/derealisation disorder [Recovered/Resolved]
  - Illusion [Recovered/Resolved]
  - Behaviour disorder [Recovered/Resolved]
  - Crying [Recovered/Resolved]
  - Swelling face [Recovered/Resolved]
  - Weight increased [Recovered/Resolved]
  - Logorrhoea [Recovered/Resolved]
  - Memory impairment [Recovered/Resolved]
  - Electric shock sensation [Recovered/Resolved]
  - Muscle twitching [Recovered/Resolved]
  - Circadian rhythm sleep disorder [Recovered/Resolved]
  - Delusion of grandeur [Recovered/Resolved]
  - Amnesia [Recovered/Resolved]

NARRATIVE: CASE EVENT DATE: 20090101
